FAERS Safety Report 25187824 (Version 5)
Quarter: 2025Q2

REPORT INFORMATION
  Report Type: Spontaneous
  Country: JP (occurrence: JP)
  Receive Date: 20250411
  Receipt Date: 20250520
  Transmission Date: 20250716
  Serious: Yes (Hospitalization, Other)
  Sender: ASTELLAS
  Company Number: JP-ASTELLAS-2025-AER-018956

PATIENT
  Age: 78 Year
  Sex: Male

DRUGS (3)
  1. VYLOY [Suspect]
     Active Substance: ZOLBETUXIMAB-CLZB
     Indication: Gastric cancer
     Dosage: 600MG/M2
     Route: 042
     Dates: start: 20250108, end: 20250401
  2. CAPECITABINE [Suspect]
     Active Substance: CAPECITABINE
     Indication: Gastric cancer
     Route: 065
     Dates: start: 20250108, end: 20250401
  3. OXALIPLATIN [Suspect]
     Active Substance: OXALIPLATIN
     Indication: Gastric cancer
     Route: 042
     Dates: start: 20250108, end: 20250401

REACTIONS (7)
  - Diabetes mellitus [Unknown]
  - Dehydration [Recovered/Resolved]
  - Platelet count decreased [Recovered/Resolved]
  - Blood albumin decreased [Recovering/Resolving]
  - Delirium [Recovered/Resolved]
  - Gastritis [Recovered/Resolved]
  - Hypernatraemia [Unknown]

NARRATIVE: CASE EVENT DATE: 20250402
